FAERS Safety Report 8515492-6 (Version None)
Quarter: 2012Q3

REPORT INFORMATION
  Report Type: 
  Country: None (occurrence: None)
  Receive Date: 20120705
  Receipt Date: 20120625
  Transmission Date: 20120928
  Serious: Yes (Hospitalization, Other)
  Sender: FDA-Public Use
  Company Number: EU-2012-10083

PATIENT
  Sex: Female
  Weight: 54 kg

DRUGS (44)
  1. NACL (NACL) [Concomitant]
  2. LEVOTHYROXINE SODIUM [Concomitant]
  3. ATACAND [Concomitant]
  4. DEXAMETHASONE [Concomitant]
  5. CARBOPLATIN [Concomitant]
  6. HYOSCINE HBR HYT [Concomitant]
  7. RIOPAN (MAGALDRATE) [Concomitant]
  8. PANTOPRAZOLE SODIUM [Concomitant]
  9. GRANISETRON (GRANISETRON HYDROCHLORIDE) [Concomitant]
  10. ZOFRAN [Concomitant]
  11. RANITIDINE HYDROCHLORIDE [Concomitant]
  12. METOCLOPRAMIDE [Concomitant]
  13. METOPROLOL SUCCINATE [Concomitant]
  14. RANITIDINE HYDROCHLORIDE [Concomitant]
  15. FENOFIBRATE [Concomitant]
  16. FRAAXIPARIN (NADROPARIN CALCIUM) [Concomitant]
  17. NOVALGIN (METAMIZOLE SODIUM) [Concomitant]
  18. EMEND [Concomitant]
  19. SALINE (SALINE) [Concomitant]
  20. HALDOL [Concomitant]
  21. NULYTELY [Concomitant]
  22. VERGENTAN (ALIZAPRIDE HYDROCHLORIDE) [Concomitant]
  23. SAMSCA [Suspect]
     Indication: INAPPROPRIATE ANTIDIURETIC HORMONE SECRETION
     Dosage: 15 MG, DAILY DOSE, ORAL
     Route: 048
     Dates: start: 20120202, end: 20120202
  24. SAMSCA [Suspect]
     Indication: INAPPROPRIATE ANTIDIURETIC HORMONE SECRETION
     Dosage: 15 MG, DAILY DOSE, ORAL
     Route: 048
     Dates: start: 20120228, end: 20120326
  25. SAMSCA [Suspect]
     Indication: INAPPROPRIATE ANTIDIURETIC HORMONE SECRETION
     Dosage: 15 MG, DAILY DOSE, ORAL
     Route: 048
     Dates: start: 20120420, end: 20120421
  26. SAMSCA [Suspect]
     Indication: INAPPROPRIATE ANTIDIURETIC HORMONE SECRETION
     Dosage: 15 MG, DAILY DOSE, ORAL
     Route: 048
     Dates: start: 20120222, end: 20120222
  27. SAMSCA [Suspect]
     Indication: INAPPROPRIATE ANTIDIURETIC HORMONE SECRETION
     Dosage: 15 MG, DAILY DOSE, ORAL
     Route: 048
     Dates: start: 20120412, end: 20120412
  28. SAMSCA [Suspect]
     Indication: INAPPROPRIATE ANTIDIURETIC HORMONE SECRETION
     Dosage: 15 MG, DAILY DOSE, ORAL
     Route: 048
     Dates: start: 20120423
  29. SAMSCA [Suspect]
     Indication: INAPPROPRIATE ANTIDIURETIC HORMONE SECRETION
     Dosage: 15 MG, DAILY DOSE, ORAL
     Route: 048
     Dates: start: 20120417, end: 20120418
  30. SAMSCA [Suspect]
     Indication: INAPPROPRIATE ANTIDIURETIC HORMONE SECRETION
     Dosage: 15 MG, DAILY DOSE, ORAL
     Route: 048
     Dates: start: 20120109, end: 20120109
  31. SAMSCA [Suspect]
     Indication: INAPPROPRIATE ANTIDIURETIC HORMONE SECRETION
     Dosage: 15 MG, DAILY DOSE, ORAL
     Route: 048
     Dates: start: 20120225, end: 20120225
  32. SAMSCA [Suspect]
     Indication: INAPPROPRIATE ANTIDIURETIC HORMONE SECRETION
     Dosage: 15 MG, DAILY DOSE, ORAL
     Route: 048
     Dates: start: 20111221, end: 20111221
  33. SAMSCA [Suspect]
     Indication: INAPPROPRIATE ANTIDIURETIC HORMONE SECRETION
     Dosage: 15 MG, DAILY DOSE, ORAL
     Route: 048
     Dates: start: 20120117, end: 20120117
  34. SAMSCA [Suspect]
     Indication: INAPPROPRIATE ANTIDIURETIC HORMONE SECRETION
     Dosage: 15 MG, DAILY DOSE, ORAL
     Route: 048
     Dates: start: 20120330, end: 20120408
  35. SAMSCA [Suspect]
     Indication: INAPPROPRIATE ANTIDIURETIC HORMONE SECRETION
     Dosage: 15 MG, DAILY DOSE, ORAL
     Route: 048
     Dates: start: 20120414, end: 20120414
  36. EMEND [Concomitant]
  37. ETOPOSIDE [Concomitant]
  38. BEZAFIBRAT (BEZAFIBRATE) [Concomitant]
  39. CLEMASTINE FUMARATE [Concomitant]
  40. ZANTAC [Concomitant]
  41. METOCLOPRAMIDE HYDROCHLORIDE [Concomitant]
  42. DIMENHYDRINATE [Concomitant]
  43. CLEMASTINE FUMARATE [Concomitant]
  44. DIMENHYDRINATE [Concomitant]

REACTIONS (4)
  - RAPID CORRECTION OF HYPONATRAEMIA [None]
  - NAUSEA [None]
  - VOMITING [None]
  - CONDITION AGGRAVATED [None]
